FAERS Safety Report 9547159 (Version 1)
Quarter: 2013Q3

REPORT INFORMATION
  Report Type: Spontaneous
  Country: FR (occurrence: FR)
  Receive Date: 20130924
  Receipt Date: 20130924
  Transmission Date: 20140515
  Serious: Yes (Hospitalization)
  Sender: FDA-Public Use
  Company Number: FR-SANOFI-AVENTIS-2013SA092607

PATIENT
  Age: 77 Year
  Sex: Male

DRUGS (9)
  1. HEMI-DAONIL [Suspect]
     Indication: TYPE 2 DIABETES MELLITUS
     Route: 048
  2. ZECLAR [Interacting]
     Indication: PRODUCT USED FOR UNKNOWN INDICATION
     Dosage: TREATMENT END DATE: JUN-2013?STRENGTH: 500 MG
     Route: 048
     Dates: start: 20130603
  3. AMOXICILLIN [Concomitant]
     Dosage: TREATMENT END DATE: JUN-2013
     Route: 048
     Dates: start: 20130603
  4. COTAREG [Concomitant]
     Indication: HYPERTENSION
     Route: 048
  5. PLAVIX [Concomitant]
     Route: 048
  6. DOLIPRANE [Concomitant]
     Route: 048
  7. OMEPRAZOLE [Concomitant]
     Route: 048
  8. TRUSOPT [Concomitant]
     Dosage: 2% OPTHALMIC SOLUTION
     Route: 031
  9. XALATAN [Concomitant]
     Dosage: 0.005% OPTHALMIC SOLUTION
     Route: 031

REACTIONS (3)
  - Delirium [Not Recovered/Not Resolved]
  - Drug interaction [Unknown]
  - Confusional state [Not Recovered/Not Resolved]
